FAERS Safety Report 9510056 (Version 2)
Quarter: 2013Q3

REPORT INFORMATION
  Report Type: Spontaneous
  Country: US (occurrence: US)
  Receive Date: 20130909
  Receipt Date: 20130909
  Transmission Date: 20140515
  Serious: No
  Sender: FDA-Public Use
  Company Number: US-BRISTOL-MYERS SQUIBB COMPANY-17136326

PATIENT
  Age: 38 Year
  Sex: Male
  Weight: 116.55 kg

DRUGS (11)
  1. ABILIFY [Suspect]
  2. EFFEXOR [Suspect]
     Dates: start: 20120914, end: 20120918
  3. KLONOPIN [Concomitant]
     Dosage: AS NECESSARY
  4. PAXIL [Concomitant]
     Dosage: 20MG, 1DF: 2TABS AT BEDTIME
  5. CLONIDINE [Concomitant]
  6. DICLOFENAC [Concomitant]
  7. GABAPENTIN [Concomitant]
  8. HYDROXYZINE [Concomitant]
     Dosage: 1TAB IN MORNING, 2TABS AT BEDTIME
  9. LITHIUM [Concomitant]
  10. METOPROLOL [Concomitant]
  11. ZYPREXA [Concomitant]

REACTIONS (4)
  - Dyskinesia [Unknown]
  - Somnambulism [Unknown]
  - Dizziness [Recovered/Resolved]
  - Memory impairment [Unknown]
